FAERS Safety Report 8454986-9 (Version None)
Quarter: 2012Q2

REPORT INFORMATION
  Report Type: 
  Country: None (occurrence: None)
  Receive Date: 20120621
  Receipt Date: 20120607
  Transmission Date: 20120825
  Serious: No
  Sender: FDA-Public Use
  Company Number: US-BAYER-2012-057262

PATIENT
  Age: 46 Year
  Sex: Female

DRUGS (2)
  1. MIRENA [Suspect]
     Indication: MENORRHAGIA
     Dosage: 20 ?G/D, UNK
     Route: 015
     Dates: start: 20120601, end: 20120601
  2. MIRENA [Suspect]
     Indication: CONTRACEPTION
     Dosage: 20 ?G/D, CONT
     Route: 015
     Dates: end: 20120601

REACTIONS (4)
  - CERVIX DISORDER [None]
  - MUSCLE SPASMS [None]
  - NO ADVERSE EVENT [None]
  - COMPLICATION OF DEVICE INSERTION [None]
